FAERS Safety Report 5170260-0 (Version None)
Quarter: 2006Q4

REPORT INFORMATION
  Report Type: 
  Country: None (occurrence: None)
  Receive Date: 20061204
  Receipt Date: 20061124
  Transmission Date: 20070319
  Serious: Yes (Hospitalization)
  Sender: FDA-Public Use
  Company Number: GXKR2006GB07656

PATIENT
  Age: 84 Year
  Sex: Male

DRUGS (11)
  1. ASPIRIN [Suspect]
     Indication: CARDIOVASCULAR EVENT PROPHYLAXIS
     Dosage: 75 MG, ORAL
     Route: 048
  2. WARFARIN SODIUM [Suspect]
     Indication: ATRIAL FIBRILLATION
     Dosage: ORAL
     Route: 048
  3. CARVEDILOL [Concomitant]
  4. DIGOXIN [Concomitant]
  5. FUROSEMIDE [Concomitant]
  6. MIXTARD HUMAN 70/30 [Concomitant]
  7. NICORANDIL                             (NICORANDIL) [Concomitant]
  8. OMEPRAZOLE [Concomitant]
  9. OXYBUTYNIN CHLORIDE [Concomitant]
  10. SPIRIVA [Concomitant]
  11. SYMBICORT [Concomitant]

REACTIONS (2)
  - DRUG INTERACTION [None]
  - EPISTAXIS [None]
